FAERS Safety Report 6301894-5 (Version None)
Quarter: 2009Q3

REPORT INFORMATION
  Report Type: 
  Country: None (occurrence: None)
  Receive Date: 20090807
  Receipt Date: 20090729
  Transmission Date: 20100115
  Serious: Yes (Other)
  Sender: FDA-Public Use
  Company Number: US-ROCHE-647025

PATIENT
  Age: 73 Year
  Sex: Female

DRUGS (1)
  1. BONIVA [Suspect]
     Indication: OSTEOPOROSIS
     Route: 065
     Dates: start: 20081201

REACTIONS (7)
  - DENTAL OPERATION [None]
  - DIARRHOEA [None]
  - FALL [None]
  - MUSCULOSKELETAL CHEST PAIN [None]
  - SPINAL COMPRESSION FRACTURE [None]
  - TOOTH EXTRACTION [None]
  - WRIST FRACTURE [None]
